FAERS Safety Report 21496683 (Version 3)
Quarter: 2022Q4

REPORT INFORMATION
  Report Type: Report from Study
  Country: US (occurrence: US)
  Receive Date: 20221022
  Receipt Date: 20221125
  Transmission Date: 20230112
  Serious: Yes (Hospitalization)
  Sender: FDA-Public Use
  Company Number: US-NOVARTISPH-NVSC2022US237385

PATIENT
  Sex: Female

DRUGS (1)
  1. ENTRESTO [Suspect]
     Active Substance: SACUBITRIL\VALSARTAN
     Indication: Product used for unknown indication
     Dosage: 1 DOSAGE FORM, BID (97 MG)
     Route: 065

REACTIONS (6)
  - Ventricular tachycardia [Recovering/Resolving]
  - Atrial fibrillation [Recovering/Resolving]
  - Nasopharyngitis [Unknown]
  - Dyspnoea [Unknown]
  - Blood sodium decreased [Unknown]
  - Cough [Unknown]
